FAERS Safety Report 8180905-9 (Version None)
Quarter: 2012Q1

REPORT INFORMATION
  Report Type: 
  Country: None (occurrence: None)
  Receive Date: 20120302
  Receipt Date: 20120226
  Transmission Date: 20120608
  Serious: Yes (Life-Threatening, Hospitalization, Other)
  Sender: FDA-Public Use
  Company Number: ES-ELI_LILLY_AND_COMPANY-ES201202002826

PATIENT
  Age: 75 Year
  Sex: Male

DRUGS (10)
  1. ALIMTA [Suspect]
     Indication: LUNG NEOPLASM MALIGNANT
     Dosage: 600 MG, UNK
     Route: 042
  2. DEPAKENE [Interacting]
     Dosage: 500 MG, EVERY 12 HOURS (INCREASED DOSE)
     Dates: start: 20111201, end: 20120201
  3. MEDROXYPROGESTERONE ACETATE [Concomitant]
     Indication: DECREASED APPETITE
     Dosage: UNK
     Dates: start: 20111201
  4. AMLODIPINE [Concomitant]
     Indication: HYPERTENSION
     Dosage: UNK
     Dates: start: 20110101
  5. DEPAKENE [Interacting]
     Indication: BIPOLAR I DISORDER
     Dosage: UNK
     Dates: start: 20111001
  6. OMEPRAZOLE [Concomitant]
     Indication: PROPHYLAXIS AGAINST GASTROINTESTINAL ULCER
     Dosage: UNK
     Dates: start: 20110101
  7. VITAMIN B-12 [Concomitant]
     Indication: VITAMIN SUPPLEMENTATION
     Dosage: UNK
     Dates: start: 20110901
  8. FOLIC ACID [Concomitant]
     Indication: VITAMIN SUPPLEMENTATION
     Dosage: UNK
     Dates: start: 20110901
  9. LITIO [Concomitant]
     Indication: DEPRESSION
     Dosage: UNK
     Dates: end: 20111101
  10. ACETYLSALICYLIC ACID SRT [Concomitant]
     Indication: CORONARY ARTERY DISEASE
     Dosage: UNK
     Dates: start: 20110601

REACTIONS (5)
  - PANCYTOPENIA [None]
  - PSYCHIATRIC DECOMPENSATION [None]
  - MUCOSAL INFLAMMATION [None]
  - ANAEMIA [None]
  - DRUG INTERACTION [None]
